FAERS Safety Report 14294604 (Version 14)
Quarter: 2020Q1

REPORT INFORMATION
  Report Type: Report from Study
  Country: None (occurrence: IL)
  Receive Date: 20171218
  Receipt Date: 20200131
  Transmission Date: 20200409
  Serious: Yes (Hospitalization)
  Sender: FDA-Public Use
  Company Number: IL-ABBVIE-17K-082-2196357-00

PATIENT
  Age: 66 Year
  Sex: Female

DRUGS (4)
  1. DUODOPA [Suspect]
     Active Substance: CARBIDOPA\LEVODOPA
     Dosage: MD 8ML,CD 2.7ML/HOUR,ED 1.2ML
     Route: 050
  2. LEPONEX [Concomitant]
     Active Substance: CLOZAPINE
     Indication: PRODUCT USED FOR UNKNOWN INDICATION
     Route: 065
  3. DUODOPA [Suspect]
     Active Substance: CARBIDOPA\LEVODOPA
     Indication: PARKINSON^S DISEASE
     Dosage: CURRENT MD- 12ML, CURRENT FR- 2.7 ML/ HOUR, CURRENT ED- 2 ML
     Route: 050
     Dates: start: 20170527
  4. DUODOPA [Suspect]
     Active Substance: CARBIDOPA\LEVODOPA
     Dosage: CURRENT MORNING DOSE- 8.0 ML, CURRENT FIXED RATE-2 ML/ HOUR, CURRENT EXTRA DOSE- 1.2 ML
     Route: 050

REACTIONS (28)
  - Dehydration [Unknown]
  - Reduced facial expression [Unknown]
  - Musculoskeletal chest pain [Unknown]
  - On and off phenomenon [Recovered/Resolved]
  - Urinary tract infection [Recovered/Resolved]
  - Blood pressure decreased [Unknown]
  - Fatigue [Unknown]
  - Fatigue [Recovered/Resolved]
  - Somnolence [Not Recovered/Not Resolved]
  - Device alarm issue [Unknown]
  - Mobility decreased [Unknown]
  - Memory impairment [Unknown]
  - Communication disorder [Unknown]
  - Dysarthria [Unknown]
  - Sleep apnoea syndrome [Not Recovered/Not Resolved]
  - Malaise [Unknown]
  - Asthenia [Unknown]
  - Device issue [Unknown]
  - Peripheral coldness [Unknown]
  - Hypoaesthesia [Unknown]
  - Hallucination [Unknown]
  - Device battery issue [Unknown]
  - Cognitive disorder [Unknown]
  - Productive cough [Unknown]
  - Hypophagia [Unknown]
  - Snoring [Unknown]
  - Somnolence [Recovered/Resolved]
  - Insomnia [Unknown]

NARRATIVE: CASE EVENT DATE: 2017
